FAERS Safety Report 23687268 (Version 1)
Quarter: 2024Q1

REPORT INFORMATION
  Report Type: Spontaneous
  Country: US (occurrence: US)
  Receive Date: 20240329
  Receipt Date: 20240329
  Transmission Date: 20240410
  Serious: No
  Sender: FDA-Public Use
  Company Number: US-PFIZER INC-PV202400041145

PATIENT
  Age: 64 Year
  Sex: Female

DRUGS (1)
  1. NURTEC ODT [Suspect]
     Active Substance: RIMEGEPANT SULFATE
     Indication: Headache
     Dosage: TAKE 1 TAB AT ONSET OF HEADACHE
     Route: 048

REACTIONS (5)
  - Off label use [Unknown]
  - Malaise [Unknown]
  - Sleep disorder [Unknown]
  - Personality change [Unknown]
  - Feeling abnormal [Unknown]
